FAERS Safety Report 6594062-3 (Version None)
Quarter: 2010Q1

REPORT INFORMATION
  Report Type: 
  Country: None (occurrence: None)
  Receive Date: 20100222
  Receipt Date: 20100218
  Transmission Date: 20100710
  Serious: Yes (Death, Hospitalization)
  Sender: FDA-Public Use
  Company Number: GB-ROCHE-606902

PATIENT
  Sex: Female
  Weight: 79.9 kg

DRUGS (3)
  1. BEVACIZUMAB [Suspect]
     Dosage: DATE OF MOST RECENT ADMINISTRATION 30 JAN 2009
     Route: 042
     Dates: start: 20081003
  2. CARBOPLATIN [Suspect]
     Dosage: DATE OF MOST RECENT ADMINISTRATION 30 JAN 2009
     Route: 042
     Dates: start: 20081003
  3. PACLITAXEL [Suspect]
     Dosage: DATE OF MOST RECENT ADMINISTRATION 30 JAN 2009. FORM: INFUSION
     Route: 042
     Dates: start: 20081006

REACTIONS (3)
  - ABDOMINAL PAIN [None]
  - DEATH [None]
  - GENITOURINARY TRACT INFECTION [None]
